FAERS Safety Report 5940028-3 (Version None)
Quarter: 2008Q4

REPORT INFORMATION
  Report Type: 
  Country: None (occurrence: None)
  Receive Date: 20081104
  Receipt Date: 20081022
  Transmission Date: 20090506
  Serious: Yes (Hospitalization, Other)
  Sender: FDA-Public Use
  Company Number: PHHY2008JP25464

PATIENT
  Sex: Female

DRUGS (2)
  1. MIKELAN LA 2% (NVO) [Suspect]
     Dosage: 1GTT OU,QD
     Dates: start: 20070920, end: 20080729
  2. EURODIN [Concomitant]
     Dosage: UNK
     Dates: start: 20071017

REACTIONS (6)
  - ANGINA PECTORIS [None]
  - ARRHYTHMIA [None]
  - ARTERIOSPASM CORONARY [None]
  - CHEST PAIN [None]
  - EXTRASYSTOLES [None]
  - PALPITATIONS [None]
